FAERS Safety Report 14296242 (Version 1)
Quarter: 2017Q4

REPORT INFORMATION
  Report Type: Other
  Country: US (occurrence: US)
  Receive Date: 20171218
  Receipt Date: 20171218
  Transmission Date: 20180321
  Serious: Yes (Hospitalization)
  Sender: FDA-Public Use
  Company Number: US-ACI HEALTHCARE LIMITED-2037281

PATIENT
  Age: 51 Year
  Sex: Male

DRUGS (9)
  1. ALBUTEROL HYDROFLUOROALKANE (HFA) [Concomitant]
  2. TRAZODONE [Concomitant]
     Active Substance: TRAZODONE HYDROCHLORIDE
  3. BUPROPION HYDROCHLORIDE SR [Concomitant]
     Active Substance: BUPROPION HYDROCHLORIDE
  4. MESALAMINE. [Concomitant]
     Active Substance: MESALAMINE
  5. RANITIDINE. [Concomitant]
     Active Substance: RANITIDINE
  6. GABAPENTIN. [Suspect]
     Active Substance: GABAPENTIN
     Indication: RESTLESS LEGS SYNDROME
  7. VARENICLINE [Concomitant]
     Active Substance: VARENICLINE
  8. PANTOPRAZOLE SODIUM. [Concomitant]
     Active Substance: PANTOPRAZOLE SODIUM
  9. FLUTICASONE/SALMETEROL [Concomitant]
     Active Substance: FLUTICASONE PROPIONATE\SALMETEROL XINAFOATE

REACTIONS (6)
  - Vomiting [Unknown]
  - Drug abuse [Unknown]
  - Seizure [Unknown]
  - Overdose [Unknown]
  - Product use in unapproved indication [Unknown]
  - Hyponatraemia [Unknown]
